FAERS Safety Report 9067911 (Version 3)
Quarter: 2013Q3

REPORT INFORMATION
  Report Type: Report from Study
  Country: DE (occurrence: DE)
  Receive Date: 20130128
  Receipt Date: 20130829
  Transmission Date: 20140515
  Serious: Yes (Life-Threatening, Hospitalization)
  Sender: FDA-Public Use
  Company Number: DE-ROCHE-1183903

PATIENT
  Age: 69 Year
  Sex: Female
  Weight: 73 kg

DRUGS (8)
  1. BLINDED PERTUZUMAB [Suspect]
     Indication: HER-2 POSITIVE BREAST CANCER
     Dosage: LOADING DOSE AS PER PROTOCOL.
     Route: 042
     Dates: start: 20120806, end: 20120806
  2. BLINDED PERTUZUMAB [Suspect]
     Dosage: MAINTENANCE DOSE AS PER PROTOCOL. START DATE ESTIMATED FROM FREQUENCY. LAST DOSE PRIOR TO SAE: 07/JA
     Route: 042
     Dates: start: 20120827, end: 20130124
  3. TRASTUZUMAB [Suspect]
     Indication: HER-2 POSITIVE BREAST CANCER
     Dosage: LOADING DOSE AS PER PROTOCOL.
     Route: 042
     Dates: start: 20120806, end: 20120806
  4. TRASTUZUMAB [Suspect]
     Dosage: MAINTENANCE DOSE AS PER PROTOCOL. START DATE ESTIMATED AS PER DHG/FREQUENCY. LAST DOSE PRIOR TO SAE:
     Route: 042
     Dates: start: 20120827, end: 20130124
  5. ACCUZIDE [Concomitant]
     Route: 065
     Dates: start: 20020630
  6. TROMCARDIN [Concomitant]
     Route: 065
     Dates: start: 20120927
  7. TORASEMIDE [Concomitant]
     Route: 065
     Dates: start: 20121015
  8. OMEPRAZOL [Concomitant]
     Route: 065
     Dates: start: 20120725

REACTIONS (1)
  - Cardiac failure [Recovered/Resolved]
